FAERS Safety Report 7647150-4 (Version None)
Quarter: 2011Q3

REPORT INFORMATION
  Report Type: 
  Country: None (occurrence: None)
  Receive Date: 20110801
  Receipt Date: 20110727
  Transmission Date: 20111222
  Serious: Yes (Death)
  Sender: FDA-Public Use
  Company Number: US-AMGEN-QUU407936

PATIENT
  Sex: Male

DRUGS (2)
  1. IMMUNOGLOBULINS [Concomitant]
     Dosage: UNK UNK, UNK
     Dates: start: 20091101, end: 20091101
  2. NPLATE [Suspect]
     Indication: IDIOPATHIC THROMBOCYTOPENIC PURPURA
     Dosage: UNK UNK, UNK
     Dates: start: 20091110, end: 20091119

REACTIONS (1)
  - DEATH [None]
